FAERS Safety Report 9771946 (Version 1)
Quarter: 2013Q4

REPORT INFORMATION
  Report Type: Report from Study
  Country: CA (occurrence: CA)
  Receive Date: 20131219
  Receipt Date: 20131219
  Transmission Date: 20140711
  Serious: Yes (Hospitalization, Other)
  Sender: FDA-Public Use
  Company Number: CA-JNJFOC-20131208823

PATIENT
  Age: 82 Year
  Sex: Male
  Weight: 83.2 kg

DRUGS (1)
  1. REMICADE [Suspect]
     Indication: RHEUMATOID ARTHRITIS
     Dosage: STARTED APPROXIMATELY 4 YEARS AGO.
     Route: 042

REACTIONS (2)
  - Umbilical hernia [Unknown]
  - Blood pressure increased [Unknown]
